FAERS Safety Report 14003888 (Version 1)
Quarter: 2017Q3

REPORT INFORMATION
  Report Type: Spontaneous
  Country: US (occurrence: US)
  Receive Date: 20170922
  Receipt Date: 20170922
  Transmission Date: 20171128
  Serious: No
  Sender: FDA-Public Use
  Company Number: US-JNJFOC-20170713346

PATIENT
  Sex: Female

DRUGS (1)
  1. DURAGESIC [Suspect]
     Active Substance: FENTANYL
     Indication: PRODUCT USED FOR UNKNOWN INDICATION
     Dosage: 2 DIFFERENT PATCHES ONE OF 50 MCG/HOUR AND OTHER OF 12.5 MCG/HOUR
     Route: 062

REACTIONS (8)
  - Product adhesion issue [Unknown]
  - Wrong technique in product usage process [Unknown]
  - Drug dose omission [Unknown]
  - Drug administered at inappropriate site [Unknown]
  - Product use complaint [Unknown]
  - Inappropriate schedule of drug administration [Unknown]
  - Application site reaction [Unknown]
  - Product quality issue [Unknown]
